FAERS Safety Report 24625095 (Version 1)
Quarter: 2024Q4

REPORT INFORMATION
  Report Type: Spontaneous
  Country: US (occurrence: None)
  Receive Date: 20241115
  Receipt Date: 20241115
  Transmission Date: 20250114
  Serious: No
  Sender: Public
  Company Number: None

PATIENT
  Age: 34 Year
  Sex: Female
  Weight: 56.25 kg

DRUGS (7)
  1. ISOTRETINOIN [Suspect]
     Active Substance: ISOTRETINOIN
     Indication: Acne
     Dates: start: 20240228, end: 20240831
  2. Nexplanon birth control [Concomitant]
  3. PROZAC [Concomitant]
     Active Substance: FLUOXETINE HYDROCHLORIDE
  4. BioTe testosterone pellet [Concomitant]
  5. Cranberry supplement [Concomitant]
  6. Ocuvite eye vitamins [Concomitant]
  7. DIM supplement [Concomitant]

REACTIONS (4)
  - Arthralgia [None]
  - Visual impairment [None]
  - Night blindness [None]
  - Alopecia [None]

NARRATIVE: CASE EVENT DATE: 20240228
